FAERS Safety Report 8211428-6 (Version None)
Quarter: 2012Q1

REPORT INFORMATION
  Report Type: 
  Country: None (occurrence: None)
  Receive Date: 20120315
  Receipt Date: 20120305
  Transmission Date: 20120608
  Serious: Yes (Other)
  Sender: FDA-Public Use
  Company Number: DE-PFIZER INC-2012063479

PATIENT
  Age: 87 Year

DRUGS (12)
  1. FENTANYL [Concomitant]
  2. PANTOPRAZOLE [Suspect]
     Dosage: 20 MG, DAILY
     Route: 065
  3. IRBESARTAN [Concomitant]
  4. MOXIFLOXACIN [Concomitant]
  5. HYDROCHLOROTHIAZIDE [Concomitant]
  6. BISOPROLOL [Concomitant]
  7. MOVIPREP [Concomitant]
  8. MAGNESIUM [Concomitant]
  9. JANUMET [Concomitant]
  10. ACETYLSALICYLIC ACID [Concomitant]
  11. AMLODIPINE [Concomitant]
  12. CARVEDILOL [Concomitant]

REACTIONS (1)
  - BLOOD GLUCOSE INCREASED [None]
